FAERS Safety Report 5354865-X (Version None)
Quarter: 2007Q2

REPORT INFORMATION
  Report Type: 
  Country: None (occurrence: None)
  Receive Date: 20070612
  Receipt Date: 20070604
  Transmission Date: 20071010
  Serious: Yes (Other)
  Sender: FDA-Public Use
  Company Number: AU-PFIZER INC-2007040585

PATIENT
  Sex: Male
  Weight: 99 kg

DRUGS (7)
  1. LOPID [Suspect]
     Indication: BLOOD TRIGLYCERIDES INCREASED
     Route: 048
  2. AVAPRO [Concomitant]
     Route: 048
  3. ALLOPURINOL [Concomitant]
     Route: 048
  4. DIAMICRON [Concomitant]
     Route: 048
  5. METFORMIN HCL [Concomitant]
     Route: 048
  6. LANTUS [Concomitant]
     Dosage: TEXT:40 UNITS-FREQ:AT NIGHT
     Route: 058
  7. PRAZOSIN HCL [Concomitant]
     Route: 048

REACTIONS (1)
  - BLOOD GLUCOSE INCREASED [None]
